FAERS Safety Report 13670303 (Version 1)
Quarter: 2017Q2

REPORT INFORMATION
  Report Type: Spontaneous
  Country: US (occurrence: US)
  Receive Date: 20170620
  Receipt Date: 20170620
  Transmission Date: 20170830
  Serious: Yes (Hospitalization, Other)
  Sender: FDA-Public Use
  Company Number: US-PFIZER INC-2017264953

PATIENT
  Age: 86 Year
  Sex: Male

DRUGS (1)
  1. CELEBREX [Suspect]
     Active Substance: CELECOXIB
     Dosage: 200 MG, DAILY
     Dates: end: 20170531

REACTIONS (7)
  - Pulmonary oedema [Unknown]
  - Animal bite [Unknown]
  - Delusion [Unknown]
  - Acute kidney injury [Unknown]
  - Arthropod bite [Unknown]
  - Tremor [Unknown]
  - Pyrexia [Unknown]
